FAERS Safety Report 7378318-2 (Version None)
Quarter: 2011Q1

REPORT INFORMATION
  Report Type: 
  Country: None (occurrence: None)
  Receive Date: 20110317
  Receipt Date: 20110302
  Transmission Date: 20110831
  Serious: Yes (Hospitalization)
  Sender: FDA-Public Use
  Company Number: FK201100353

PATIENT

DRUGS (1)
  1. XYLOCAINE [Suspect]
     Indication: PRODUCT USED FOR UNKNOWN INDICATION
     Dosage: INTRA-ARTICULAR
     Route: 014

REACTIONS (3)
  - ARTHRITIS INFECTIVE [None]
  - STREPTOCOCCUS TEST POSITIVE [None]
  - PRODUCT QUALITY ISSUE [None]
